FAERS Safety Report 18966913 (Version 3)
Quarter: 2021Q2

REPORT INFORMATION
  Report Type: Spontaneous
  Country: GB (occurrence: GB)
  Receive Date: 20210303
  Receipt Date: 20210520
  Transmission Date: 20210717
  Serious: Yes (Other)
  Sender: FDA-Public Use
  Company Number: GB-AUROBINDO-AUR-APL-2021-008482

PATIENT
  Age: 46 Year
  Sex: Female

DRUGS (8)
  1. NAPROXEN TABLET [Suspect]
     Active Substance: NAPROXEN
     Dosage: UNK
     Route: 065
  2. TRAMADOL. [Concomitant]
     Active Substance: TRAMADOL
     Indication: PRODUCT USED FOR UNKNOWN INDICATION
     Dosage: 100 MILLIGRAM, ONCE A DAY
     Route: 065
  3. COCODAMOL [Concomitant]
     Active Substance: ACETAMINOPHEN\CODEINE PHOSPHATE
     Indication: PRODUCT USED FOR UNKNOWN INDICATION
     Dosage: 30/500 2 ONCE A DAY
     Route: 065
  4. TRAMADOL. [Concomitant]
     Active Substance: TRAMADOL
     Dosage: UNK
     Route: 065
  5. NAPROXEN TABLET [Suspect]
     Active Substance: NAPROXEN
     Indication: PAIN
     Dosage: 500 MILLIGRAM, TWO TIMES A DAY (250MG TABLETS. 2 IN MORNING AND 2 AT NIGHT)
     Route: 048
     Dates: end: 20210115
  6. SERTRALINE [Concomitant]
     Active Substance: SERTRALINE HYDROCHLORIDE
     Indication: PRODUCT USED FOR UNKNOWN INDICATION
     Dosage: 50 MILLIGRAM, ONCE A DAY
     Route: 065
  7. CHLORPHENAMINE [Concomitant]
     Active Substance: CHLORPHENIRAMINE MALEATE
     Indication: PRODUCT USED FOR UNKNOWN INDICATION
     Dosage: 16 MILLIGRAM, ONCE A DAY (4MG 4 AT NIGHT)
     Route: 065
  8. OMEPRAZOLE. [Concomitant]
     Active Substance: OMEPRAZOLE
     Indication: PRODUCT USED FOR UNKNOWN INDICATION
     Dosage: 1 DOSAGE FORM WITH NAPROXEN IN THE MORNING
     Route: 065

REACTIONS (6)
  - Wound [Not Recovered/Not Resolved]
  - Scar [Not Recovered/Not Resolved]
  - Pseudoporphyria [Unknown]
  - Dermatitis bullous [Unknown]
  - Skin atrophy [Not Recovered/Not Resolved]
  - Blister [Recovered/Resolved]
